FAERS Safety Report 5832462-7 (Version None)
Quarter: 2008Q3

REPORT INFORMATION
  Report Type: 
  Country: None (occurrence: None)
  Receive Date: 20080730
  Receipt Date: 20080718
  Transmission Date: 20090109
  Serious: Yes (Other)
  Sender: FDA-Public Use
  Company Number: 19815

PATIENT
  Age: 35 Year
  Sex: Female

DRUGS (6)
  1. DOXORUBICIN HCL [Suspect]
     Indication: DIFFUSE LARGE B-CELL LYMPHOMA
     Dates: start: 20070605, end: 20071101
  2. VINCRISTINE [Suspect]
     Indication: DIFFUSE LARGE B-CELL LYMPHOMA
     Dates: start: 20070605, end: 20071101
  3. CYCLOPHOSPHAMIDE [Suspect]
     Indication: DIFFUSE LARGE B-CELL LYMPHOMA
     Dates: start: 20070605, end: 20071101
  4. MABTHERA [Suspect]
     Indication: DIFFUSE LARGE B-CELL LYMPHOMA
     Dosage: 375 MG/M2 Q3W IV
     Route: 042
     Dates: start: 20070605, end: 20071101
  5. MABTHERA [Suspect]
     Indication: DIFFUSE LARGE B-CELL LYMPHOMA
     Dates: start: 20080519
  6. PREDNISONE TAB [Suspect]
     Indication: DIFFUSE LARGE B-CELL LYMPHOMA
     Dates: start: 20070605, end: 20071101

REACTIONS (2)
  - INFECTION [None]
  - NEUTROPENIA [None]
